FAERS Safety Report 10549404 (Version 1)
Quarter: 2014Q4

REPORT INFORMATION
  Report Type: Spontaneous
  Country: US (occurrence: None)
  Receive Date: 20141016
  Receipt Date: 20141016
  Transmission Date: 20150529
  Serious: No
  Sender: FDA-Public Use
  Company Number: CABO-14004633

PATIENT
  Age: 76 Year
  Sex: Male

DRUGS (1)
  1. COMETRIQ [Suspect]
     Active Substance: CABOZANTINIB S-MALATE
     Indication: THYROID CANCER
     Route: 048
     Dates: start: 20140809

REACTIONS (4)
  - Fatigue [None]
  - Ear discomfort [None]
  - Decreased appetite [None]
  - Ageusia [None]

NARRATIVE: CASE EVENT DATE: 20140810
